FAERS Safety Report 7797651-3 (Version None)
Quarter: 2011Q4

REPORT INFORMATION
  Report Type: 
  Country: None (occurrence: None)
  Receive Date: 20111005
  Receipt Date: 20110928
  Transmission Date: 20120403
  Serious: Yes (Hospitalization, Other)
  Sender: FDA-Public Use
  Company Number: US-ABBOTT-11P-163-0852877-00

PATIENT
  Age: 39 Year
  Sex: Female

DRUGS (8)
  1. NORVIR [Suspect]
     Dosage: NOT TAKEN AT CONCEPTION
     Route: 048
     Dates: start: 20110701
  2. NORVIR [Suspect]
     Indication: ANTIRETROVIRAL THERAPY
     Dosage: TAKEN AT CONCEPTION
     Route: 048
     Dates: start: 20100701, end: 20110520
  3. REYATAZ [Suspect]
     Indication: ANTIRETROVIRAL THERAPY
     Dosage: TAKEN AT CONCEPTION
     Route: 048
     Dates: start: 20100701, end: 20110520
  4. TRUVADA [Suspect]
     Dosage: 1 TAB/CAPS NOT TAKEN AT CONCEPTION
     Route: 048
     Dates: start: 20110701
  5. ALDOMET [Concomitant]
     Indication: BLOOD PRESSURE
  6. TRUVADA [Suspect]
     Indication: ANTIRETROVIRAL THERAPY
     Dosage: 1 TAB/CAPS TAKEN AT CONCEPTION
     Route: 048
     Dates: start: 20100701, end: 20110520
  7. REYATAZ [Suspect]
     Dosage: NOT TAKEN AT CONCEPTION
     Route: 048
     Dates: start: 20110701
  8. LABETALOL HCL [Concomitant]
     Indication: BLOOD PRESSURE

REACTIONS (2)
  - INTRA-UTERINE DEATH [None]
  - HYPERTENSION [None]
